FAERS Safety Report 4585892-8 (Version None)
Quarter: 2005Q1

REPORT INFORMATION
  Report Type: 
  Country: None (occurrence: None)
  Receive Date: 20050217
  Receipt Date: 20050210
  Transmission Date: 20050727
  Serious: Yes (Hospitalization)
  Sender: FDA-Public Use
  Company Number: FR-GLAXOSMITHKLINE-B0371463A

PATIENT
  Age: 77 Year
  Sex: Female
  Weight: 90 kg

DRUGS (6)
  1. AUGMENTIN '125' [Suspect]
     Dosage: 1G THREE TIMES PER DAY
     Route: 042
     Dates: start: 20050101
  2. RISORDAN [Suspect]
     Dosage: 1MG UNKNOWN
     Route: 042
     Dates: start: 20050101, end: 20050102
  3. OFLOCET [Suspect]
     Dosage: 200MG TWICE PER DAY
     Route: 042
     Dates: start: 20050101, end: 20050105
  4. DIGOXIN [Concomitant]
     Route: 065
  5. LASILIX [Concomitant]
     Route: 065
  6. MIDAZOLAM HCL [Concomitant]
     Route: 065

REACTIONS (1)
  - RHABDOMYOLYSIS [None]
